FAERS Safety Report 8507277-1 (Version None)
Quarter: 2012Q3

REPORT INFORMATION
  Report Type: 
  Country: None (occurrence: None)
  Receive Date: 20120712
  Receipt Date: 20120703
  Transmission Date: 20120928
  Serious: Yes (Death)
  Sender: FDA-Public Use
  Company Number: US-009507513-1207USA000797

PATIENT

DRUGS (2)
  1. ISENTRESS [Suspect]
     Indication: NEOPLASM MALIGNANT
  2. ISENTRESS [Suspect]
     Indication: HIV INFECTION
     Dosage: UNK
     Route: 048

REACTIONS (1)
  - DEATH [None]
